FAERS Safety Report 8288893-1 (Version None)
Quarter: 2012Q2

REPORT INFORMATION
  Report Type: 
  Country: None (occurrence: None)
  Receive Date: 20120412
  Receipt Date: 20120328
  Transmission Date: 20120825
  Serious: Yes (Other)
  Sender: FDA-Public Use
  Company Number: 2012-0629-SPO

PATIENT
  Age: 54 Year
  Sex: Female
  Weight: 55 kg

DRUGS (2)
  1. ESTRADIOL [Suspect]
     Indication: MENOPAUSE
     Dosage: 2 PRESS/DAY, 1 IN 1 D, TRANSDERMAL
     Route: 062
     Dates: start: 20120308, end: 20120311
  2. PROGESTERONE [Concomitant]

REACTIONS (4)
  - DRY MOUTH [None]
  - MALAISE [None]
  - SWELLING [None]
  - PAIN [None]
